FAERS Safety Report 8459825-8 (Version None)
Quarter: 2012Q2

REPORT INFORMATION
  Report Type: 
  Country: None (occurrence: None)
  Receive Date: 20120622
  Receipt Date: 20120615
  Transmission Date: 20120825
  Serious: Yes (Hospitalization, Other)
  Sender: FDA-Public Use
  Company Number: PHHY2012MX040686

PATIENT
  Sex: Female

DRUGS (11)
  1. MOXIFLOXACIN [Concomitant]
     Dosage: UNK UKN, UNK
     Dates: start: 20120524
  2. CELEBREX [Concomitant]
     Dosage: UNK UKN, PRN
  3. CIPROFLOXACIN HYDROCHLORIDE [Concomitant]
     Dosage: 250 MG, 6 EVERY 24 HOURS
     Dates: start: 20120604
  4. ZOLEDRONOC ACID [Suspect]
     Indication: OSTEOPOROSIS
     Dosage: 5 MG/ 100 ML ONCE A YEAR
     Route: 042
     Dates: start: 20110506
  5. CALCIUM CARBONATE [Concomitant]
     Dosage: UNK UKN, UNK
  6. PINAVERIUM BROMIDE [Concomitant]
     Indication: COLITIS
     Dosage: 2 EVERY 24 HOURS
     Dates: start: 20120524
  7. LOSARTAN POTASSIUM [Concomitant]
     Dosage: 50 MG, BID
  8. OMEPRAZOLE [Concomitant]
     Dosage: 1 EVERY 24 HOURS
     Dates: start: 20120524
  9. ASPIRIN [Concomitant]
     Dosage: ONCE A DAY SINCE ONE YEAR AGO
  10. INSULIN GLARGINE [Concomitant]
     Dosage: 12 UNITS EVERY 24 HOURS
  11. COMBIVENT [Concomitant]
     Dosage: UNK UKN, UNK

REACTIONS (10)
  - DIARRHOEA [None]
  - FACE INJURY [None]
  - LIMB INJURY [None]
  - SKIN FISSURES [None]
  - ABDOMINAL PAIN [None]
  - SHOCK [None]
  - HEAD INJURY [None]
  - DEHYDRATION [None]
  - ATELECTASIS [None]
  - ROAD TRAFFIC ACCIDENT [None]
